FAERS Safety Report 18940885 (Version 1)
Quarter: 2021Q1

REPORT INFORMATION
  Report Type: Spontaneous
  Country: IT (occurrence: IT)
  Receive Date: 20210225
  Receipt Date: 20210225
  Transmission Date: 20210420
  Serious: Yes (Other)
  Sender: FDA-Public Use
  Company Number: IT-JNJFOC-20210231505

PATIENT
  Age: 27 Year
  Sex: Male

DRUGS (1)
  1. SIMPONI [Suspect]
     Active Substance: GOLIMUMAB
     Indication: ANKYLOSING SPONDYLITIS
     Route: 058
     Dates: start: 2012, end: 201612

REACTIONS (3)
  - IgA nephropathy [Recovered/Resolved]
  - Drug ineffective [Unknown]
  - Glomerulonephritis membranous [Recovered/Resolved]

NARRATIVE: CASE EVENT DATE: 2017
